FAERS Safety Report 5866670-6 (Version None)
Quarter: 2008Q3

REPORT INFORMATION
  Report Type: 
  Country: None (occurrence: None)
  Receive Date: 20080827
  Receipt Date: 20080812
  Transmission Date: 20090109
  Serious: Yes (Death, Other)
  Sender: FDA-Public Use
  Company Number: 2008S1014662

PATIENT

DRUGS (5)
  1. ACYCLOVIR [Suspect]
     Indication: HERPES VIRUS INFECTION
  2. HEPATITIS B IMMUNE GLOBULIN (HUMAN) [Suspect]
     Indication: HEPATITIS B IMMUNISATION
  3. LAMIVUDINE [Suspect]
     Indication: HUMAN IMMUNODEFICIENCY VIRUS TRANSMISSION
  4. VIRAMUNE [Suspect]
     Indication: HUMAN IMMUNODEFICIENCY VIRUS TRANSMISSION
  5. ZIDOVUDINE [Suspect]
     Indication: HUMAN IMMUNODEFICIENCY VIRUS TRANSMISSION

REACTIONS (7)
  - ACIDOSIS [None]
  - CONGENITAL HERPES SIMPLEX INFECTION [None]
  - CONVULSION [None]
  - DISSEMINATED INTRAVASCULAR COAGULATION [None]
  - LIVER FUNCTION TEST ABNORMAL [None]
  - MALAISE [None]
  - PYREXIA [None]
